FAERS Safety Report 5482804-X (Version None)
Quarter: 2007Q4

REPORT INFORMATION
  Report Type: 
  Country: None (occurrence: None)
  Receive Date: 20071011
  Receipt Date: 20070928
  Transmission Date: 20080405
  Serious: Yes (Hospitalization)
  Sender: FDA-Public Use
  Company Number: FR-PFIZER INC-2007055062

PATIENT
  Sex: Female
  Weight: 58 kg

DRUGS (8)
  1. LYRICA [Suspect]
     Indication: NEURALGIA
     Dosage: DAILY DOSE:25MG-FREQ:DAILY
     Route: 048
  2. NEURONTIN [Suspect]
  3. MACROGOL [Concomitant]
     Route: 048
  4. PARACETAMOL [Concomitant]
     Route: 048
  5. FENOFIBRATE [Concomitant]
     Route: 048
  6. DOMPERIDONE [Concomitant]
     Route: 048
  7. ACETAMINOPHEN W/ PROPOXYPHENE HCL [Concomitant]
     Route: 048
  8. LAROXYL [Concomitant]
     Route: 048

REACTIONS (3)
  - CONFUSIONAL STATE [None]
  - DEHYDRATION [None]
  - HYPERTHERMIA [None]
